FAERS Safety Report 5480748-0 (Version None)
Quarter: 2007Q3

REPORT INFORMATION
  Report Type: 
  Country: None (occurrence: None)
  Receive Date: 20070913
  Receipt Date: 20070504
  Transmission Date: 20080115
  Serious: Yes (Other)
  Sender: FDA-Public Use
  Company Number: PHEH2007US06199

PATIENT
  Age: 78 Year
  Sex: Female

DRUGS (2)
  1. DIOVAN [Suspect]
     Indication: HYPERTENSION
     Dosage: 320 MG, QD,
  2. METOPROLOL TARTRATE [Suspect]

REACTIONS (2)
  - DIZZINESS [None]
  - HYPERTENSION [None]
